FAERS Safety Report 16145879 (Version 1)
Quarter: 2019Q2

REPORT INFORMATION
  Report Type: Spontaneous
  Country: US (occurrence: US)
  Receive Date: 20190227
  Receipt Date: 20190227
  Transmission Date: 20190711
  Serious: Yes (Hospitalization)
  Sender: FDA-Public Use
  Company Number: None

PATIENT
  Age: 46 Year
  Sex: Male
  Weight: 77.11 kg

DRUGS (8)
  1. ESCITALOPRAM (GENERIC FOR LEXAPRO) [Suspect]
     Active Substance: ESCITALOPRAM OXALATE
     Indication: MAJOR DEPRESSION
     Dosage: ?          QUANTITY:10 MG MILLIGRAM(S);?
     Route: 048
     Dates: start: 20171229, end: 20180118
  2. CLOBETASOL [Concomitant]
     Active Substance: CLOBETASOL
  3. IBROFEN [Concomitant]
  4. ESCITALOPRAM (GENERIC FOR LEXAPRO) [Suspect]
     Active Substance: ESCITALOPRAM OXALATE
     Indication: ANXIETY
     Dosage: ?          QUANTITY:10 MG MILLIGRAM(S);?
     Route: 048
     Dates: start: 20171229, end: 20180118
  5. BETASEPT 4% SURGICAL SCRUB [Concomitant]
  6. LORATADINE. [Concomitant]
     Active Substance: LORATADINE
  7. 2% TOPICAL SHAMPOO [Concomitant]
  8. KETOCONAZOLE. [Concomitant]
     Active Substance: KETOCONAZOLE

REACTIONS (4)
  - Skin lesion [None]
  - Skin disorder [None]
  - Pruritus [None]
  - Skin haemorrhage [None]

NARRATIVE: CASE EVENT DATE: 20180115
